FAERS Safety Report 4622082-4 (Version None)
Quarter: 2005Q1

REPORT INFORMATION
  Report Type: 
  Country: None (occurrence: None)
  Receive Date: 20050329
  Receipt Date: 20050314
  Transmission Date: 20050727
  Serious: Yes (Hospitalization)
  Sender: FDA-Public Use
  Company Number: 2005AP000249

PATIENT
  Age: 53 Year
  Sex: Male

DRUGS (4)
  1. FLUOXETINE HYDROCHLORIDE [Suspect]
     Indication: DEPRESSION
  2. CLONAZEPAM [Concomitant]
  3. TRAMADOL HCL [Concomitant]
  4. TRAZODONE HCL [Concomitant]

REACTIONS (7)
  - ABDOMINAL DISCOMFORT [None]
  - C-REACTIVE PROTEIN INCREASED [None]
  - HALLUCINATION, VISUAL [None]
  - OEDEMA [None]
  - PETECHIAE [None]
  - SEROTONIN SYNDROME [None]
  - TACHYCARDIA [None]
